FAERS Safety Report 20731863 (Version 1)
Quarter: 2022Q2

REPORT INFORMATION
  Report Type: Report from Study
  Country: CA (occurrence: CA)
  Receive Date: 20220420
  Receipt Date: 20220420
  Transmission Date: 20220721
  Serious: Yes (Hospitalization, Other)
  Sender: FDA-Public Use
  Company Number: CA-SHIRE-CA201942875

PATIENT
  Age: 63 Year
  Sex: Female
  Weight: 61.2 kg

DRUGS (28)
  1. TEDUGLUTIDE [Suspect]
     Active Substance: TEDUGLUTIDE
     Indication: Short-bowel syndrome
     Dosage: 3.09 MILLIGRAM, QD
     Route: 065
     Dates: start: 20190610
  2. TEDUGLUTIDE [Suspect]
     Active Substance: TEDUGLUTIDE
     Indication: Short-bowel syndrome
     Dosage: 3.09 MILLIGRAM, QD
     Route: 065
     Dates: start: 20190610
  3. TEDUGLUTIDE [Suspect]
     Active Substance: TEDUGLUTIDE
     Indication: Short-bowel syndrome
     Dosage: 3.09 MILLIGRAM, QD
     Route: 065
     Dates: start: 20190610
  4. TEDUGLUTIDE [Suspect]
     Active Substance: TEDUGLUTIDE
     Indication: Short-bowel syndrome
     Dosage: 3.09 MILLIGRAM, QD
     Route: 065
     Dates: start: 20190610
  5. TEDUGLUTIDE [Suspect]
     Active Substance: TEDUGLUTIDE
     Dosage: 3.09 MILLIGRAM, QD
     Route: 058
     Dates: start: 20190610
  6. TEDUGLUTIDE [Suspect]
     Active Substance: TEDUGLUTIDE
     Dosage: 3.09 MILLIGRAM, QD
     Route: 058
     Dates: start: 20190610
  7. TEDUGLUTIDE [Suspect]
     Active Substance: TEDUGLUTIDE
     Dosage: 3.09 MILLIGRAM, QD
     Route: 058
     Dates: start: 20190610
  8. TEDUGLUTIDE [Suspect]
     Active Substance: TEDUGLUTIDE
     Dosage: 3.09 MILLIGRAM, QD
     Route: 058
     Dates: start: 20190610
  9. TEDUGLUTIDE [Suspect]
     Active Substance: TEDUGLUTIDE
     Dosage: 3.09 MILLIGRAM, QD
     Route: 058
     Dates: start: 20190610, end: 20200408
  10. TEDUGLUTIDE [Suspect]
     Active Substance: TEDUGLUTIDE
     Dosage: 3.09 MILLIGRAM, QD
     Route: 058
     Dates: start: 20190610, end: 20200408
  11. TEDUGLUTIDE [Suspect]
     Active Substance: TEDUGLUTIDE
     Dosage: 3.09 MILLIGRAM, QD
     Route: 058
     Dates: start: 20190610, end: 20200408
  12. TEDUGLUTIDE [Suspect]
     Active Substance: TEDUGLUTIDE
     Dosage: 3.09 MILLIGRAM, QD
     Route: 058
     Dates: start: 20190610, end: 20200408
  13. AMINO ACIDS\CARBOHYDRATES\MINERALS\VITAMINS [Concomitant]
     Active Substance: AMINO ACIDS\CARBOHYDRATES\MINERALS\VITAMINS
     Indication: Product used for unknown indication
     Dosage: 2005 MILLILITER, QD
     Route: 065
     Dates: start: 1997
  14. SANDOSTATIN [Concomitant]
     Active Substance: OCTREOTIDE ACETATE
     Indication: Diarrhoea
     Dosage: 1.5 MILLIGRAM, 3X/DAY:TID
     Route: 065
  15. LEVOTHYROXINE [Concomitant]
     Active Substance: LEVOTHYROXINE
     Indication: Product used for unknown indication
     Dosage: 100 MICROGRAM, QD
     Route: 042
  16. MIRTAZAPINE [Concomitant]
     Active Substance: MIRTAZAPINE
     Indication: Depression
     Dosage: 40 MILLIGRAM, QD
     Route: 065
  17. DOXY [DOXYCYCLINE] [Concomitant]
     Indication: Product used for unknown indication
     Dosage: 100 MILLIGRAM, 2X/DAY:BID
     Route: 065
  18. PRANOL [DIOSMIN] [Concomitant]
     Indication: Product used for unknown indication
     Dosage: 2 DOSAGE FORM, BID
     Route: 065
  19. URSODIOL [Concomitant]
     Active Substance: URSODIOL
     Indication: Product used for unknown indication
     Dosage: 500 MILLIGRAM, 3X/DAY:TID
     Route: 065
  20. OCTREOTIDE [Concomitant]
     Active Substance: OCTREOTIDE
     Indication: Diarrhoea
     Dosage: 200 MICROGRAM, TID
     Route: 058
  21. GABAPENTIN [Concomitant]
     Active Substance: GABAPENTIN
     Indication: Product used for unknown indication
     Dosage: 1 DOSAGE FORM, TID
     Route: 065
  22. VITAMIN D NOS [Concomitant]
     Active Substance: VITAMIN D NOS
     Indication: Product used for unknown indication
     Dosage: 5 DOSAGE FORM, QD
     Route: 065
  23. LANSOPRAZOLE [Concomitant]
     Active Substance: LANSOPRAZOLE
     Indication: Product used for unknown indication
     Dosage: 30 MILLIGRAM, QD
     Route: 065
  24. GRAVOL [Concomitant]
     Active Substance: DIMENHYDRINATE
     Indication: Product used for unknown indication
  25. DEXTROSE\ELECTROLYTES NOS [Concomitant]
     Active Substance: DEXTROSE\ELECTROLYTES NOS
     Indication: Product used for unknown indication
  26. FORTEO [Concomitant]
     Active Substance: TERIPARATIDE
     Indication: Product used for unknown indication
     Dosage: 250 MILLILITER, QD
     Route: 058
  27. HYDROMORPHONE [Concomitant]
     Active Substance: HYDROMORPHONE
     Indication: Pain management
     Dosage: 0.4 MILLILITER, Q4HR
     Route: 065
  28. LOPERAMIDE [Concomitant]
     Active Substance: LOPERAMIDE
     Indication: Diarrhoea
     Dosage: 2 DOSAGE FORM, QOD
     Route: 065

REACTIONS (28)
  - Hospitalisation [Unknown]
  - Urinary fistula [Unknown]
  - Diarrhoea [Unknown]
  - Stoma site reaction [Unknown]
  - Ill-defined disorder [Unknown]
  - Stoma site extravasation [Unknown]
  - Pneumaturia [Unknown]
  - Intervertebral disc degeneration [Unknown]
  - Poor quality sleep [Not Recovered/Not Resolved]
  - Serum ferritin increased [Unknown]
  - Frequent bowel movements [Unknown]
  - Arthralgia [Not Recovered/Not Resolved]
  - Gastrointestinal hypomotility [Not Recovered/Not Resolved]
  - Urine abnormality [Unknown]
  - Contusion [Not Recovered/Not Resolved]
  - Pain in extremity [Not Recovered/Not Resolved]
  - Fatigue [Not Recovered/Not Resolved]
  - Functional gastrointestinal disorder [Unknown]
  - Infection [Unknown]
  - Feeling abnormal [Unknown]
  - Stoma site discharge [Unknown]
  - Pyrexia [Unknown]
  - Proctalgia [Not Recovered/Not Resolved]
  - Nausea [Not Recovered/Not Resolved]
  - Vomiting [Unknown]
  - Abdominal distension [Not Recovered/Not Resolved]
  - Decreased appetite [Not Recovered/Not Resolved]
  - Abdominal pain [Unknown]

NARRATIVE: CASE EVENT DATE: 20191201
